FAERS Safety Report 13905515 (Version 1)
Quarter: 2017Q3

REPORT INFORMATION
  Report Type: Spontaneous
  Country: US (occurrence: None)
  Receive Date: 20170821
  Receipt Date: 20170821
  Transmission Date: 20171127
  Serious: No
  Sender: FDA-Public Use
  Company Number: None

PATIENT
  Age: 50 Year
  Sex: Male

DRUGS (2)
  1. METFORMIN HCL 1.000MG [Suspect]
     Active Substance: METFORMIN HYDROCHLORIDE
     Indication: BLOOD GLUCOSE ABNORMAL
     Dates: start: 20170301
  2. ALEVE [Concomitant]
     Active Substance: NAPROXEN SODIUM

REACTIONS (6)
  - Back pain [None]
  - Hyperhidrosis [None]
  - Dizziness [None]
  - Back disorder [None]
  - Muscle spasms [None]
  - Eye disorder [None]

NARRATIVE: CASE EVENT DATE: 20170327
